FAERS Safety Report 5179677-1 (Version None)
Quarter: 2006Q4

REPORT INFORMATION
  Report Type: 
  Country: None (occurrence: None)
  Receive Date: 20061212
  Receipt Date: 20061127
  Transmission Date: 20070319
  Serious: Yes (Hospitalization)
  Sender: FDA-Public Use
  Company Number: 233605

PATIENT

DRUGS (1)
  1. HERCEPTIN [Suspect]
     Indication: BREAST CANCER
     Dosage: Q3W, INTRAVENOUS
     Route: 042
     Dates: start: 20061002, end: 20061002

REACTIONS (6)
  - BLOOD BRAIN BARRIER DEFECT [None]
  - CSF PROTEIN INCREASED [None]
  - PAIN [None]
  - PARAPARESIS [None]
  - PLEOCYTOSIS [None]
  - RADICULITIS [None]
